FAERS Safety Report 13518675 (Version 2)
Quarter: 2017Q3

REPORT INFORMATION
  Report Type: Spontaneous
  Country: GB (occurrence: GB)
  Receive Date: 20170505
  Receipt Date: 20170712
  Transmission Date: 20171127
  Serious: Yes (Other)
  Sender: FDA-Public Use
  Company Number: GB-JNJFOC-20170504444

PATIENT
  Age: 92 Year
  Sex: Female

DRUGS (3)
  1. XARELTO [Suspect]
     Active Substance: RIVAROXABAN
     Indication: THROMBOSIS
     Route: 048
     Dates: start: 20161229, end: 201701
  2. XARELTO [Suspect]
     Active Substance: RIVAROXABAN
     Indication: THROMBOSIS
     Route: 048
     Dates: start: 201509, end: 20161229
  3. ASPIRIN. [Concomitant]
     Active Substance: ASPIRIN
     Route: 065
     Dates: start: 20170308, end: 20170330

REACTIONS (16)
  - Gait disturbance [Unknown]
  - Monoplegia [Not Recovered/Not Resolved]
  - Genital erythema [Unknown]
  - Joint swelling [Not Recovered/Not Resolved]
  - Bladder dysfunction [Unknown]
  - Ocular hyperaemia [Not Recovered/Not Resolved]
  - Genital swelling [Unknown]
  - Blood urine present [Unknown]
  - Muscular weakness [Not Recovered/Not Resolved]
  - Skin haemorrhage [Not Recovered/Not Resolved]
  - Foot fracture [Unknown]
  - Mobility decreased [Unknown]
  - Lacrimal haemorrhage [Unknown]
  - Anxiety [Unknown]
  - Hypoaesthesia [Not Recovered/Not Resolved]
  - Fall [Not Recovered/Not Resolved]

NARRATIVE: CASE EVENT DATE: 20161228
